FAERS Safety Report 4921433-0 (Version None)
Quarter: 2006Q1

REPORT INFORMATION
  Report Type: 
  Country: None (occurrence: None)
  Receive Date: 20060221
  Receipt Date: 20060210
  Transmission Date: 20060701
  Serious: Yes (Other)
  Sender: FDA-Public Use
  Company Number: 222036

PATIENT
  Age: 67 Year
  Sex: Female

DRUGS (10)
  1. RITUXAN (RITUXIMAB) CONC FOR SOLUTION FOR INFUSION [Suspect]
     Indication: LYMPHOMA
     Dosage: 510 MG, INTRAVENOUS
     Route: 042
     Dates: start: 20040930, end: 20041118
  2. CYCLOPHOSPHAMIDE [Suspect]
     Indication: LYMPHOMA
     Dosage: 54 MG
     Dates: start: 20040930, end: 20041111
  3. DOXORUBICIN HCL [Suspect]
     Indication: LYMPHOMA
     Dosage: 820 MG, INTRAVENOUS
     Route: 042
     Dates: start: 20040930, end: 20041111
  4. VINCRISTINE [Suspect]
     Indication: LYMPHOMA
     Dosage: 1.5 , INTRAVENOUS
     Route: 042
     Dates: start: 20040930, end: 20051111
  5. PREDNISOLONE [Suspect]
     Indication: LYMPHOMA
     Dosage: 80 MG, ORAL
     Route: 048
     Dates: start: 20040930, end: 20041115
  6. CHLORPHENIRAMINE MALEATE [Concomitant]
  7. FAMOTIDINE [Concomitant]
  8. IBUPROFEN [Concomitant]
  9. REBAMIPIDE (REBAMIPIDE) [Concomitant]
  10. RADIOTHERAPY (RADIATION THERAPY) [Concomitant]

REACTIONS (2)
  - NEUTROPHIL COUNT DECREASED [None]
  - WHITE BLOOD CELL COUNT DECREASED [None]
